FAERS Safety Report 22046431 (Version 1)
Quarter: 2023Q1

REPORT INFORMATION
  Report Type: Report from Study
  Country: JP (occurrence: None)
  Receive Date: 20230228
  Receipt Date: 20230228
  Transmission Date: 20230417
  Serious: Yes (Death, Hospitalization)
  Sender: FDA-Public Use
  Company Number: 2021A423779

PATIENT
  Age: 83 Year
  Sex: Male
  Weight: 45 kg

DRUGS (25)
  1. BRILINTA [Suspect]
     Active Substance: TICAGRELOR
     Indication: Myocardial infarction
     Route: 048
     Dates: start: 20190912, end: 20210121
  2. BRILINTA [Suspect]
     Active Substance: TICAGRELOR
     Indication: Myocardial infarction
     Route: 048
     Dates: start: 20210129
  3. ASPIRIN [Suspect]
     Active Substance: ASPIRIN
     Route: 048
     Dates: end: 20200125
  4. NEXIUM CAPSULES 20MG [Concomitant]
     Route: 048
     Dates: start: 20191205
  5. CRESTOR [Concomitant]
     Active Substance: ROSUVASTATIN CALCIUM
     Route: 048
     Dates: start: 20200115
  6. CARVEDILOL [Concomitant]
     Active Substance: CARVEDILOL
     Route: 048
  7. AMLODIPINE [Concomitant]
     Active Substance: AMLODIPINE BESYLATE
     Route: 048
     Dates: start: 20190922
  8. LINAGLIPTIN [Concomitant]
     Active Substance: LINAGLIPTIN
     Route: 048
     Dates: end: 20200115
  9. NAFTOPIDIL [Concomitant]
     Active Substance: NAFTOPIDIL
     Route: 048
  10. URIEF OD [Concomitant]
     Dates: end: 20200115
  11. URSODIOL [Concomitant]
     Active Substance: URSODIOL
     Route: 048
  12. CALONAL [Concomitant]
     Active Substance: ACETAMINOPHEN
     Route: 048
  13. METHYLCOBALAMIN [Concomitant]
     Active Substance: METHYLCOBALAMIN
     Route: 048
     Dates: end: 20200115
  14. LANSOPRAZOLE [Concomitant]
     Active Substance: LANSOPRAZOLE
     Route: 048
     Dates: end: 20191204
  15. SODIUM CHLORIDE [Concomitant]
     Active Substance: SODIUM CHLORIDE
     Route: 048
  16. ZETIA [Concomitant]
     Active Substance: EZETIMIBE
     Route: 048
     Dates: start: 20190913, end: 20200115
  17. POTASSIUM ASPARTATE [Concomitant]
     Active Substance: POTASSIUM ASPARTATE
     Route: 048
     Dates: start: 20190917, end: 20191203
  18. BELSOMRA [Concomitant]
     Active Substance: SUVOREXANT
     Route: 048
     Dates: start: 20190918
  19. FEBUXOSTAT [Concomitant]
     Active Substance: FEBUXOSTAT
     Route: 048
     Dates: start: 20191001
  20. AZOSEMIDE [Concomitant]
     Active Substance: AZOSEMIDE
     Route: 048
  21. SAMSCA [Concomitant]
     Active Substance: TOLVAPTAN
     Route: 048
  22. SODIUM FERROUS CITRATE [Concomitant]
     Active Substance: SODIUM FERROUS CITRATE
     Route: 048
  23. AMIODARONE HYDROCHLORIDE [Concomitant]
     Active Substance: AMIODARONE HYDROCHLORIDE
     Route: 048
  24. EZETIMIBE\ROSUVASTATIN [Concomitant]
     Active Substance: EZETIMIBE\ROSUVASTATIN
     Route: 048
     Dates: start: 20200116
  25. SILODOSIN OD [Concomitant]
     Route: 048
     Dates: start: 20200903

REACTIONS (5)
  - Cardiac failure [Fatal]
  - Chest discomfort [Recovered/Resolved]
  - Pericardial effusion [Fatal]
  - Epistaxis [Recovered/Resolved]
  - Lumbar vertebral fracture [Recovered/Resolved]

NARRATIVE: CASE EVENT DATE: 20190928
